FAERS Safety Report 4675230-4 (Version None)
Quarter: 2005Q2

REPORT INFORMATION
  Report Type: 
  Country: None (occurrence: None)
  Receive Date: 20050527
  Receipt Date: 20050329
  Transmission Date: 20051028
  Serious: Yes (Other)
  Sender: FDA-Public Use
  Company Number: PHFR2005IE01770

PATIENT
  Age: 41 Year
  Sex: Female

DRUGS (7)
  1. CLOZARIL [Suspect]
     Indication: SCHIZOPHRENIA
     Route: 048
     Dates: start: 20031028, end: 20050315
  2. CLOZARIL [Suspect]
     Dosage: 150 MG/DAY
     Route: 048
     Dates: start: 20040101, end: 20050301
  3. AMISULPRIDE [Concomitant]
     Indication: PSYCHOTIC DISORDER
     Dosage: UPTO 1200MG/DAY
     Route: 048
     Dates: start: 20040901
  4. DIAZEPAM [Concomitant]
     Indication: MUSCLE DISORDER
     Dosage: UPTO 20 MG/DAY
     Route: 048
     Dates: start: 19910101
  5. BACLOFEN [Concomitant]
     Indication: MUSCLE DISORDER
     Dosage: UPTO 40 MG/DAY
     Dates: start: 19910101
  6. LEXAPRO [Concomitant]
     Indication: OBSESSIVE-COMPULSIVE DISORDER
     Dosage: 20 MG/DAY
     Route: 048
     Dates: start: 20040801, end: 20050301
  7. ESCITALOPRAM OXALATE [Concomitant]

REACTIONS (3)
  - ABNORMAL BEHAVIOUR [None]
  - CONDITION AGGRAVATED [None]
  - OBSESSIVE-COMPULSIVE DISORDER [None]
